FAERS Safety Report 4399169-7 (Version None)
Quarter: 2004Q3

REPORT INFORMATION
  Report Type: 
  Country: None (occurrence: None)
  Receive Date: 20040715
  Receipt Date: 20040715
  Transmission Date: 20050211
  Serious: Yes (Hospitalization)
  Sender: FDA-Public Use
  Company Number: None

PATIENT
  Age: 76 Year
  Sex: Male

DRUGS (12)
  1. IRESSA [Suspect]
     Indication: THYROID GLAND CANCER
     Dosage: 250 MG PO QD
     Route: 048
     Dates: start: 20040601, end: 20040714
  2. ASPIRIN [Concomitant]
  3. ATENOLOL [Concomitant]
  4. COUMADIN [Concomitant]
  5. GLYBURIDE [Concomitant]
  6. KCL POWDER [Concomitant]
  7. LASIX [Concomitant]
  8. LEVOXYL [Concomitant]
  9. LIPITOR [Concomitant]
  10. METFORMIN HCL [Concomitant]
  11. BENZACLIN GEL [Concomitant]
  12. LISINOPRIL [Concomitant]

REACTIONS (1)
  - CEREBROVASCULAR ACCIDENT [None]
